FAERS Safety Report 9023948 (Version 1)
Quarter: 2013Q1

REPORT INFORMATION
  Report Type: Spontaneous
  Country: US (occurrence: US)
  Receive Date: 20130121
  Receipt Date: 20130121
  Transmission Date: 20140127
  Serious: No
  Sender: FDA-Public Use
  Company Number: US-PFIZER INC-2013020710

PATIENT
  Age: 52 Year
  Sex: Female
  Weight: 82.09 kg

DRUGS (4)
  1. INLYTA [Suspect]
     Indication: RENAL CELL CARCINOMA
     Dosage: 5 MG, 2X/DAY
     Dates: start: 20121022, end: 2012
  2. INLYTA [Suspect]
     Dosage: 7 MG, 2X/DAY
     Dates: start: 2012, end: 2012
  3. INLYTA [Suspect]
     Dosage: 10 MG, 2X/DAY
     Dates: start: 2012, end: 2012
  4. INLYTA [Suspect]
     Dosage: 5 MG, 2X/DAY
     Dates: start: 2012

REACTIONS (5)
  - Disease progression [Unknown]
  - Renal cell carcinoma [Unknown]
  - Arthralgia [Not Recovered/Not Resolved]
  - Myalgia [Not Recovered/Not Resolved]
  - Blood calcium increased [Unknown]
